FAERS Safety Report 4331485-7 (Version None)
Quarter: 2004Q1

REPORT INFORMATION
  Report Type: 
  Country: None (occurrence: None)
  Receive Date: 20040329
  Receipt Date: 20040312
  Transmission Date: 20041129
  Serious: Yes (Hospitalization)
  Sender: FDA-Public Use
  Company Number: US-JNJFOC-20040301187

PATIENT
  Age: 84 Year
  Sex: Male

DRUGS (7)
  1. GALANTAMINE (GALANTAMINE) UNSPECIFIED [Suspect]
     Indication: COGNITIVE DISORDER
     Dosage: 24 MG, 1 IN 1 DAY, ORAL
     Route: 048
     Dates: start: 20030911
  2. LANOXIN [Concomitant]
  3. RYTHMOL [Concomitant]
  4. COUMADIN [Concomitant]
  5. AVAPRO [Concomitant]
  6. MULTIVITAMINS (MULTIVITAMINS) TABLETS [Concomitant]
  7. VITAMIN E (TOCOPHEROL) CAPSULES [Concomitant]

REACTIONS (8)
  - AMNESIA [None]
  - ATRIAL FIBRILLATION [None]
  - ATRIOVENTRICULAR BLOCK [None]
  - BRADYCARDIA [None]
  - FLANK PAIN [None]
  - SINUS TACHYCARDIA [None]
  - SYNCOPE [None]
  - SYNCOPE VASOVAGAL [None]
